FAERS Safety Report 8567423-0 (Version None)
Quarter: 2012Q3

REPORT INFORMATION
  Report Type: 
  Country: None (occurrence: None)
  Receive Date: 20120803
  Receipt Date: 20120731
  Transmission Date: 20120928
  Serious: Yes (Hospitalization, Other)
  Sender: FDA-Public Use
  Company Number: PHHY2012AT058255

PATIENT
  Age: 25 Year
  Sex: Female

DRUGS (5)
  1. GILENYA [Suspect]
     Dosage: 0.5 MG, QD
     Route: 048
  2. GILENYA [Suspect]
     Dosage: 0.5 MG, QD
     Route: 048
     Dates: start: 20111101
  3. PARKEMED [Concomitant]
     Indication: HEADACHE
  4. PANTOPRAZOLE [Concomitant]
  5. METHYLPREDNISOLONE [Concomitant]

REACTIONS (8)
  - COGNITIVE DISORDER [None]
  - HYPOAESTHESIA [None]
  - CONFUSIONAL STATE [None]
  - DYSARTHRIA [None]
  - SENSORY LOSS [None]
  - APHASIA [None]
  - NYSTAGMUS [None]
  - FATIGUE [None]
